FAERS Safety Report 5374939-7 (Version None)
Quarter: 2007Q2

REPORT INFORMATION
  Report Type: 
  Country: None (occurrence: None)
  Receive Date: 20070629
  Receipt Date: 20070628
  Transmission Date: 20071010
  Serious: Yes (Hospitalization)
  Sender: FDA-Public Use
  Company Number: NL-SANOFI-SYNTHELABO-F01200700790

PATIENT
  Sex: Male

DRUGS (5)
  1. FUROSEMIDE [Concomitant]
     Indication: DYSPNOEA EXERTIONAL
     Route: 048
  2. NITRAZEPAM [Concomitant]
     Indication: SLEEP DISORDER
     Route: 048
     Dates: start: 20060501
  3. LEUPROLIDE ACETATE [Suspect]
     Indication: PROSTATE CANCER
     Route: 058
     Dates: start: 20061218, end: 20061218
  4. CIPROFLOXACIN HCL [Concomitant]
     Indication: URINARY TRACT INFECTION
     Route: 048
     Dates: start: 20061215, end: 20061230
  5. BICALUTAMIDE [Suspect]
     Indication: PROSTATE CANCER
     Route: 048
     Dates: start: 20061219, end: 20070117

REACTIONS (1)
  - MYOCARDIAL ISCHAEMIA [None]
